FAERS Safety Report 4561571-8 (Version None)
Quarter: 2005Q1

REPORT INFORMATION
  Report Type: 
  Country: None (occurrence: None)
  Receive Date: 20050121
  Receipt Date: 20041230
  Transmission Date: 20050727
  Serious: Yes (Hospitalization, Other)
  Sender: FDA-Public Use
  Company Number: USA041287197

PATIENT
  Age: 75 Year
  Sex: Female

DRUGS (2)
  1. FORTEO [Suspect]
     Indication: OSTEOPOROSIS
     Dates: start: 20040401
  2. CALCIUM GLUCONATE [Concomitant]

REACTIONS (4)
  - BLOOD CALCIUM INCREASED [None]
  - FALL [None]
  - PHARMACEUTICAL PRODUCT COMPLAINT [None]
  - UPPER LIMB FRACTURE [None]
